FAERS Safety Report 8270775-2 (Version None)
Quarter: 2012Q2

REPORT INFORMATION
  Report Type: 
  Country: None (occurrence: None)
  Receive Date: 20120406
  Receipt Date: 20120327
  Transmission Date: 20120825
  Serious: Yes (Hospitalization)
  Sender: FDA-Public Use
  Company Number: DSJ-2012-04732

PATIENT
  Age: 76 Year
  Sex: Female
  Weight: 66 kg

DRUGS (4)
  1. SPIRONOLACTONE (SPIRONOLACTONE) (TABLET) (SPIRONOLACTONE) [Concomitant]
  2. OLMESARTAN MEDOXOMIL [Suspect]
     Indication: HYPERTENSION
     Dosage: 20 MG (20 MG, 1 IN 1 D), PER ORAL
     Route: 048
     Dates: start: 20080101, end: 20091115
  3. ALFACALCIDOL (ALFACALCIDOL) (ALFACALCIDOL) [Concomitant]
  4. FUROSEMIDE (FUROSEMIDE) (TABLET) (FUROSEMIDE) [Concomitant]

REACTIONS (8)
  - LOSS OF CONSCIOUSNESS [None]
  - ENTEROBACTER TEST POSITIVE [None]
  - URINARY TRACT INFECTION [None]
  - HYPERKALAEMIA [None]
  - HYPOCALCAEMIA [None]
  - CONVULSION [None]
  - AZOTAEMIA [None]
  - INAPPROPRIATE SCHEDULE OF DRUG ADMINISTRATION [None]
